FAERS Safety Report 24795639 (Version 2)
Quarter: 2025Q1

REPORT INFORMATION
  Report Type: Spontaneous
  Country: US (occurrence: US)
  Receive Date: 20250101
  Receipt Date: 20250219
  Transmission Date: 20250408
  Serious: No
  Sender: TEVA
  Company Number: US-TEVA-VS-3276026

PATIENT
  Age: 30 Year
  Sex: Female

DRUGS (2)
  1. UZEDY [Suspect]
     Active Substance: RISPERIDONE
     Indication: Schizophrenia
     Route: 065
     Dates: start: 202408
  2. UZEDY [Suspect]
     Active Substance: RISPERIDONE
     Route: 065

REACTIONS (1)
  - Galactorrhoea [Unknown]
